FAERS Safety Report 4422330-X (Version None)
Quarter: 2004Q3

REPORT INFORMATION
  Report Type: 
  Country: None (occurrence: None)
  Receive Date: 20040810
  Receipt Date: 20040802
  Transmission Date: 20050211
  Serious: Yes (Other)
  Sender: FDA-Public Use
  Company Number: 362265

PATIENT
  Age: 62 Year
  Sex: Female

DRUGS (7)
  1. DILATREND [Suspect]
     Dosage: 12.5MG PER DAY
     Route: 048
     Dates: start: 20010615
  2. LORZAAR [Concomitant]
     Dates: start: 20030915
  3. ASPIRIN [Concomitant]
     Dates: start: 20010715
  4. ENAHEXAL [Concomitant]
     Dates: start: 20010615, end: 20030615
  5. PIRACETAM [Concomitant]
     Dates: start: 20011115
  6. PRAVASTATIN [Concomitant]
     Dates: start: 20010715
  7. VITAMIN E [Concomitant]

REACTIONS (6)
  - ARTHRALGIA [None]
  - MOBILITY DECREASED [None]
  - MUSCULOSKELETAL DISCOMFORT [None]
  - OSTEOARTHRITIS [None]
  - PAIN IN EXTREMITY [None]
  - RHEUMATOID ARTHRITIS [None]
